FAERS Safety Report 5478488-7 (Version None)
Quarter: 2007Q4

REPORT INFORMATION
  Report Type: 
  Country: None (occurrence: None)
  Receive Date: 20071005
  Receipt Date: 20071001
  Transmission Date: 20080405
  Serious: Yes (Life-Threatening, Hospitalization, Other)
  Sender: FDA-Public Use
  Company Number: PHEH2007US13004

PATIENT
  Sex: Male
  Weight: 83.48 kg

DRUGS (10)
  1. PREDNISONE [Concomitant]
     Dosage: 3 MG, QD
  2. DIGOXIN [Concomitant]
     Dosage: 125 UG, QD
  3. LORATADINE [Concomitant]
     Dosage: 10 MG, QD
  4. LEVOTHYROXINE SODIUM [Concomitant]
     Dosage: 25 UG, QD
  5. CEFTRIAXONE [Concomitant]
     Dosage: 1 G, QD
     Route: 042
  6. METRONIDAZOLE [Concomitant]
     Dosage: 500 MG, Q6H
     Route: 042
  7. OXYCODONE HCL [Concomitant]
     Indication: PAIN
     Dosage: 5 MG, Q4H PRN
  8. FENTANYL [Concomitant]
     Dosage: UNK, PRN
  9. AMIODARONE [Concomitant]
     Dosage: 100 MG, QD
  10. EXJADE [Suspect]
     Indication: IRON OVERLOAD
     Route: 048
     Dates: start: 20070701, end: 20070806

REACTIONS (22)
  - ABDOMINAL DISTENSION [None]
  - ABDOMINAL PAIN [None]
  - ALANINE AMINOTRANSFERASE INCREASED [None]
  - ASCITES [None]
  - ASPARTATE AMINOTRANSFERASE INCREASED [None]
  - BLOOD ALBUMIN DECREASED [None]
  - BLOOD ALKALINE PHOSPHATASE INCREASED [None]
  - BLOOD BILIRUBIN INCREASED [None]
  - BRAIN NATRIURETIC PEPTIDE INCREASED [None]
  - CONTUSION [None]
  - DECREASED APPETITE [None]
  - DIARRHOEA [None]
  - HAEMATOCRIT DECREASED [None]
  - HAEMOGLOBIN DECREASED [None]
  - HEPATIC FAILURE [None]
  - JAUNDICE [None]
  - LEUKOPENIA [None]
  - NAUSEA [None]
  - NEUTROPHIL COUNT DECREASED [None]
  - PANCYTOPENIA [None]
  - SERUM FERRITIN INCREASED [None]
  - THROMBOCYTOPENIA [None]
